FAERS Safety Report 8151069-2 (Version None)
Quarter: 2012Q1

REPORT INFORMATION
  Report Type: 
  Country: None (occurrence: None)
  Receive Date: 20120220
  Receipt Date: 20120213
  Transmission Date: 20120608
  Serious: Yes (Hospitalization, Disabling, Other)
  Sender: FDA-Public Use
  Company Number: US-MERCK-1107USA03461

PATIENT
  Age: 60 Year
  Sex: Female
  Weight: 54 kg

DRUGS (6)
  1. FOSAMAX [Suspect]
     Indication: OSTEOPOROSIS
     Route: 048
     Dates: start: 19980314, end: 19980901
  2. BONIVA [Suspect]
     Route: 048
     Dates: start: 20080304
  3. FOSAMAX [Suspect]
     Route: 048
     Dates: start: 20020421, end: 20080304
  4. VITAMINS (UNSPECIFIED) [Concomitant]
     Route: 065
     Dates: start: 19970101
  5. VITAMIN E [Concomitant]
     Route: 065
     Dates: start: 19970101, end: 20020101
  6. EVISTA [Concomitant]
     Route: 048
     Dates: start: 19920101, end: 20070101

REACTIONS (51)
  - FRACTURE NONUNION [None]
  - FALL [None]
  - SYNCOPE [None]
  - UTERINE LEIOMYOMA [None]
  - KYPHOSIS [None]
  - DEEP VEIN THROMBOSIS [None]
  - DEVICE FAILURE [None]
  - METASTATIC NEOPLASM [None]
  - OVARIAN NEOPLASM [None]
  - MESENTERIC NEOPLASM [None]
  - BLOOD CHOLESTEROL INCREASED [None]
  - OSTEOARTHRITIS [None]
  - PAIN IN EXTREMITY [None]
  - THROMBOSIS [None]
  - DEPRESSION [None]
  - ARTHRALGIA [None]
  - RASH [None]
  - FATIGUE [None]
  - EAR DISCOMFORT [None]
  - CHANGE OF BOWEL HABIT [None]
  - UPPER LIMB FRACTURE [None]
  - FUNGAL INFECTION [None]
  - HYPOTHYROIDISM [None]
  - HYPOPARATHYROIDISM [None]
  - INSOMNIA [None]
  - FEMUR FRACTURE [None]
  - LOW TURNOVER OSTEOPATHY [None]
  - BLEPHAROSPASM [None]
  - TIBIA FRACTURE [None]
  - PHLEBITIS [None]
  - RADIUS FRACTURE [None]
  - SPINAL OSTEOARTHRITIS [None]
  - CONJUNCTIVITIS INFECTIVE [None]
  - ENDOMETRIAL HYPERPLASIA [None]
  - NEUROPATHY PERIPHERAL [None]
  - HEPATIC CYST [None]
  - OVARIAN DISORDER [None]
  - RENAL CYST [None]
  - ECCHYMOSIS [None]
  - OEDEMA PERIPHERAL [None]
  - HYPERLIPIDAEMIA [None]
  - HYSTERECTOMY [None]
  - ULNA FRACTURE [None]
  - ANXIETY [None]
  - DRUG HYPERSENSITIVITY [None]
  - WRIST FRACTURE [None]
  - BURSITIS [None]
  - JOINT INJURY [None]
  - INTERVERTEBRAL DISC DEGENERATION [None]
  - COLITIS [None]
  - OVARIAN GERM CELL TERATOMA BENIGN [None]
